FAERS Safety Report 10499090 (Version 1)
Quarter: 2014Q4

REPORT INFORMATION
  Report Type: Spontaneous
  Country: US (occurrence: US)
  Receive Date: 20141006
  Receipt Date: 20141006
  Transmission Date: 20150528
  Serious: No
  Sender: FDA-Public Use
  Company Number: US-AMGEN INC.-USASP2013091199

PATIENT
  Age: 82 Year
  Sex: Male

DRUGS (6)
  1. PREDNISONE. [Concomitant]
     Active Substance: PREDNISONE
  2. VITAMIN D                          /00107901/ [Concomitant]
     Active Substance: ERGOCALCIFEROL
  3. XGEVA [Suspect]
     Active Substance: DENOSUMAB
     Indication: PROPHYLAXIS
     Dosage: 120 MG, Q4WK
     Route: 065
     Dates: start: 20130823
  4. LUPRON [Concomitant]
     Active Substance: LEUPROLIDE ACETATE
  5. ZYTIGA [Concomitant]
     Active Substance: ABIRATERONE ACETATE
  6. CALCIUM                            /00060701/ [Concomitant]
     Active Substance: CALCIUM

REACTIONS (1)
  - Tooth disorder [Not Recovered/Not Resolved]
